FAERS Safety Report 5070150-8 (Version None)
Quarter: 2006Q3

REPORT INFORMATION
  Report Type: 
  Country: None (occurrence: None)
  Receive Date: 20060803
  Receipt Date: 20060419
  Transmission Date: 20061208
  Serious: Yes (Other)
  Sender: FDA-Public Use
  Company Number: US-BRISTOL-MYERS SQUIBB COMPANY-13351143

PATIENT
  Age: 67 Year
  Sex: Female
  Weight: 52 kg

DRUGS (5)
  1. SINEMET CR [Suspect]
     Indication: PARKINSON'S DISEASE
     Route: 048
     Dates: start: 19950501
  2. EVISTA [Concomitant]
     Indication: ARTHRALGIA
  3. HYDROCODONE [Concomitant]
     Indication: ARTHRALGIA
  4. LISINOPRIL [Concomitant]
  5. ATIVAN [Concomitant]

REACTIONS (5)
  - ASTHENIA [None]
  - DEPENDENCE [None]
  - HYPOKINESIA [None]
  - MUSCLE SPASMS [None]
  - STOMACH DISCOMFORT [None]
